FAERS Safety Report 10445053 (Version 1)
Quarter: 2014Q3

REPORT INFORMATION
  Report Type: Spontaneous
  Country: CN (occurrence: CN)
  Receive Date: 20140910
  Receipt Date: 20140910
  Transmission Date: 20150326
  Serious: Yes (Other)
  Sender: FDA-Public Use
  Company Number: CN-JNJFOC-20140906478

PATIENT
  Age: 31 Year
  Sex: Male

DRUGS (1)
  1. RISPERDAL [Suspect]
     Active Substance: RISPERIDONE
     Indication: MENTAL DISORDER
     Dosage: 1-1.5 MG QD
     Route: 048
     Dates: start: 200007

REACTIONS (10)
  - Pollakiuria [Recovering/Resolving]
  - Product quality issue [Unknown]
  - Drug ineffective [Unknown]
  - Drug administration error [Unknown]
  - Chest pain [Recovering/Resolving]
  - Wrong technique in drug usage process [Unknown]
  - Therapeutic response changed [Unknown]
  - Drug dependence [Unknown]
  - Fatigue [Unknown]
  - Agitation [Unknown]
